FAERS Safety Report 8577977-6 (Version None)
Quarter: 2012Q3

REPORT INFORMATION
  Report Type: 
  Country: None (occurrence: None)
  Receive Date: 20120725
  Receipt Date: 20120710
  Transmission Date: 20120928
  Serious: Yes (Death, Hospitalization)
  Sender: FDA-Public Use
  Company Number: 2012-01071

PATIENT
  Age: 79 Year
  Sex: Female
  Weight: 55.45 kg

DRUGS (27)
  1. BUMETANIDE [Suspect]
     Indication: PRODUCT USED FOR UNKNOWN INDICATION
  2. ACETAMINOPHEN AND CODEINE PHOSPHATE [Concomitant]
  3. TRAMADOL HCL [Concomitant]
  4. FAT + PROTEIN (FORTSIP) [Concomitant]
  5. AMIODARONE HCL [Concomitant]
  6. METOCLOPRAMIDE [Concomitant]
  7. ACETAMINOPHEN [Concomitant]
  8. TEICOPLANIN [Concomitant]
  9. WARFARIN SODIUM [Concomitant]
  10. SIMVASTATIN [Suspect]
     Indication: PRODUCT USED FOR UNKNOWN INDICATION
  11. CANDESARTAN CILEXETIL [Concomitant]
  12. CLOTRIMAZOLE [Concomitant]
  13. DIORALYTE [Concomitant]
  14. FOLIC ACID [Concomitant]
  15. FUROSEMIDE [Concomitant]
  16. METHOTREXATE [Concomitant]
  17. CLARITHROMYCIN [Suspect]
     Indication: PNEUMONIA
     Dosage: 1000 MG (500 MG,2 IN 1 D),ORAL
     Route: 048
     Dates: start: 20120512, end: 20120521
  18. SPIRONOLACTONE [Suspect]
     Indication: PRODUCT USED FOR UNKNOWN INDICATION
  19. DICLOFENAC (DICLOFENAC DIETHYLAMMONIUM SALT) [Concomitant]
  20. HEPARIN [Concomitant]
  21. ADCAL-D3 [Concomitant]
  22. ADENOSINE [Concomitant]
  23. BISOPROLOL FUMARATE [Concomitant]
  24. AMOXYCILLIN + POTASSIUM CLAVULANATE (CO-AMOXICLAV) [Concomitant]
  25. DALTEPARIN (DALTEPARIN SODIUM) [Concomitant]
  26. GEMTAMICIN [Concomitant]
  27. OMEPRAZOLE [Concomitant]

REACTIONS (8)
  - TOXIC EPIDERMAL NECROLYSIS [None]
  - RENAL FAILURE ACUTE [None]
  - FLUID OVERLOAD [None]
  - OEDEMA PERIPHERAL [None]
  - ATRIAL FIBRILLATION [None]
  - HAEMOGLOBIN DECREASED [None]
  - STEVENS-JOHNSON SYNDROME [None]
  - DRY SKIN [None]
